FAERS Safety Report 21655019 (Version 4)
Quarter: 2023Q1

REPORT INFORMATION
  Report Type: Spontaneous
  Country: PL (occurrence: PL)
  Receive Date: 20221129
  Receipt Date: 20230205
  Transmission Date: 20230418
  Serious: Yes (Life-Threatening, Hospitalization, Other)
  Sender: FDA-Public Use
  Company Number: PL-SYMPHAR-115_CLOZAPINE_QUETIAPINE_2022

PATIENT
  Age: 70 Year
  Sex: Female

DRUGS (27)
  1. METOPROLOL [Suspect]
     Active Substance: METOPROLOL
     Indication: Cardiac disorder
     Dosage: 25 MILLIGRAM, DAILY
     Route: 065
  2. QUETIAPINE [Suspect]
     Active Substance: QUETIAPINE
     Indication: Delusion
     Dosage: 25 MILLIGRAM, OVERNIGHT
     Route: 065
  3. QUETIAPINE [Suspect]
     Active Substance: QUETIAPINE
     Indication: Aggression
  4. CLONAZEPAM [Suspect]
     Active Substance: CLONAZEPAM
     Indication: Delusion
     Dosage: 20 MILLIGRAM, ONCE A DAY (AT BED TIME)
     Route: 065
  5. CLONAZEPAM [Suspect]
     Active Substance: CLONAZEPAM
     Indication: Aggression
  6. CLOZAPINE [Suspect]
     Active Substance: CLOZAPINE
     Indication: Delusion
     Dosage: 25 MILLIGRAM, ONCE A DAY (OVERNIGHT)
     Route: 065
  7. CLOZAPINE [Suspect]
     Active Substance: CLOZAPINE
     Indication: Moaning
     Dosage: UNK, TWO TIMES A DAY
     Route: 065
  8. DIAZEPAM [Suspect]
     Active Substance: DIAZEPAM
     Indication: Aggression
     Dosage: 20 MILLIGRAM, AT BED TIME
     Route: 065
  9. DIAZEPAM [Suspect]
     Active Substance: DIAZEPAM
     Indication: Delusion
  10. HALOPERIDOL [Suspect]
     Active Substance: HALOPERIDOL
     Indication: Delusion
     Dosage: 30 MILLIGRAM, AT BED TIME
     Route: 065
  11. HALOPERIDOL [Suspect]
     Active Substance: HALOPERIDOL
     Indication: Aggression
  12. SELEGILINE [Suspect]
     Active Substance: SELEGILINE
     Indication: Parkinson^s disease
     Dosage: 5 MILLIGRAM, ONCE A DAY
     Route: 065
  13. TRAZODONE [Suspect]
     Active Substance: TRAZODONE HYDROCHLORIDE
     Indication: Sleep disorder
     Dosage: 75 MILLIGRAM, DAILY
     Route: 065
  14. TRAZODONE [Suspect]
     Active Substance: TRAZODONE HYDROCHLORIDE
     Indication: Insomnia
  15. BENSERAZIDE\LEVODOPA [Concomitant]
     Active Substance: BENSERAZIDE\LEVODOPA
     Indication: Parkinson^s disease
     Dosage: 500 MILLIGRAM, ONCE A DAY
     Route: 065
  16. BENSERAZIDE\LEVODOPA [Concomitant]
     Active Substance: BENSERAZIDE\LEVODOPA
     Dosage: 62.5 MILLIGRAM, 3 TIMES A DAY
     Route: 065
  17. MIDAZOLAM [Concomitant]
     Active Substance: MIDAZOLAM
     Indication: Neuroleptic malignant syndrome
     Dosage: INFUSION OF MIDAZOLAM 50 MG IN 50 ML 0.9% NACL AT A DOSE OF 2 ML/H
     Route: 065
  18. LORAZEPAM [Concomitant]
     Active Substance: LORAZEPAM
     Indication: Delusion
     Dosage: 1 MG-1MG-2MG
     Route: 065
  19. LORAZEPAM [Concomitant]
     Active Substance: LORAZEPAM
     Indication: Moaning
  20. LORAZEPAM [Concomitant]
     Active Substance: LORAZEPAM
     Indication: Neuroleptic malignant syndrome
  21. AMANTADINE [Concomitant]
     Active Substance: AMANTADINE
     Indication: Parkinson^s disease
     Dosage: 200 MILLIGRAM, TWO TIMES A DAY
     Route: 065
  22. AMANTADINE [Concomitant]
     Active Substance: AMANTADINE
     Indication: Neuroleptic malignant syndrome
     Dosage: 100 MILLIGRAM, TWO TIMES A DAY
     Route: 065
  23. ROPINIROLE [Concomitant]
     Active Substance: ROPINIROLE
     Indication: Parkinson^s disease
     Dosage: 4 MILLIGRAM, DAILY
     Route: 065
  24. METOPROLOL [Concomitant]
     Active Substance: METOPROLOL
     Indication: Product used for unknown indication
     Dosage: UNK
     Route: 065
  25. DIAZEPAM [Concomitant]
     Active Substance: DIAZEPAM
     Indication: Delusion
     Dosage: 20 MILLIGRAM, ONCE A DAY DURING NIGHT SHIFT
     Route: 065
  26. DIAZEPAM [Concomitant]
     Active Substance: DIAZEPAM
     Indication: Aggression
  27. OXYGEN [Concomitant]
     Active Substance: OXYGEN
     Indication: Product used for unknown indication
     Dosage: UNK
     Route: 065

REACTIONS (14)
  - Therapy non-responder [Unknown]
  - Neuroleptic malignant syndrome [Not Recovered/Not Resolved]
  - Pneumonia [Unknown]
  - Rapid eye movement sleep behaviour disorder [Unknown]
  - Hypersensitivity [Unknown]
  - Immobile [Unknown]
  - Body temperature increased [Unknown]
  - Musculoskeletal stiffness [Unknown]
  - Mutism [Unknown]
  - Tachycardia [Unknown]
  - Abnormal dreams [Unknown]
  - Serotonin syndrome [Unknown]
  - Product use issue [Unknown]
  - Drug interaction [Unknown]
